FAERS Safety Report 7776910-4 (Version None)
Quarter: 2011Q3

REPORT INFORMATION
  Report Type: 
  Country: None (occurrence: None)
  Receive Date: 20110923
  Receipt Date: 20110923
  Transmission Date: 20111222
  Serious: Yes (Hospitalization)
  Sender: FDA-Public Use
  Company Number: None

PATIENT
  Age: 60 Year
  Sex: Male
  Weight: 54.5 kg

DRUGS (1)
  1. MORPHINE [Suspect]
     Dosage: 60 MG TID PO
     Route: 048
     Dates: start: 20110416

REACTIONS (2)
  - LETHARGY [None]
  - OVERDOSE [None]
